FAERS Safety Report 22591805 (Version 1)
Quarter: 2023Q2

REPORT INFORMATION
  Report Type: Spontaneous
  Country: US (occurrence: US)
  Receive Date: 20230612
  Receipt Date: 20230612
  Transmission Date: 20230722
  Serious: No
  Sender: FDA-Public Use
  Company Number: US-RIGEL Pharmaceuticals, INC-2023FOS000143

PATIENT
  Age: 26 Year
  Sex: Female
  Weight: 84.807 kg

DRUGS (1)
  1. TAVALISSE [Suspect]
     Active Substance: FOSTAMATINIB
     Indication: Immune thrombocytopenia
     Dosage: 100 MG, BID
     Route: 048
     Dates: start: 20220901

REACTIONS (2)
  - Headache [Unknown]
  - Weight increased [Unknown]

NARRATIVE: CASE EVENT DATE: 20230202
